FAERS Safety Report 23272671 (Version 1)
Quarter: 2023Q4

REPORT INFORMATION
  Report Type: Report from Study
  Country: CN (occurrence: None)
  Receive Date: 20231207
  Receipt Date: 20231207
  Transmission Date: 20240109
  Serious: Yes (Other)
  Sender: FDA-Public Use
  Company Number: 2023A272392

PATIENT

DRUGS (6)
  1. DURVALUMAB [Suspect]
     Active Substance: DURVALUMAB
     Indication: Hepatocellular carcinoma
     Route: 042
     Dates: start: 20230927, end: 20230927
  2. DURVALUMAB [Suspect]
     Active Substance: DURVALUMAB
     Indication: Hepatocellular carcinoma
     Route: 042
     Dates: start: 20231028, end: 20231028
  3. DURVALUMAB\TREMELIMUMAB [Suspect]
     Active Substance: DURVALUMAB\TREMELIMUMAB
     Indication: Hepatocellular carcinoma
     Dosage: 300.0MG ONCE/SINGLE ADMINISTRATION
     Route: 042
     Dates: start: 20230927, end: 20230927
  4. ENTERAL NUTRITIONAL POWDER (TP) [Concomitant]
     Route: 048
     Dates: start: 20231128
  5. BIFENDATE PILLS [Concomitant]
     Indication: Liver disorder
     Route: 048
     Dates: start: 20230724
  6. YINZHIHUANG ORAL LIQUID [Concomitant]
     Indication: Liver disorder
     Route: 048
     Dates: start: 20230731

REACTIONS (1)
  - Drug-induced liver injury [Not Recovered/Not Resolved]

NARRATIVE: CASE EVENT DATE: 20231128
